FAERS Safety Report 17428228 (Version 1)
Quarter: 2020Q1

REPORT INFORMATION
  Report Type: Spontaneous
  Country: AU (occurrence: AU)
  Receive Date: 20200218
  Receipt Date: 20200218
  Transmission Date: 20200409
  Serious: Yes (Other)
  Sender: FDA-Public Use
  Company Number: AU-ALKEM LABORATORIES LIMITED-AU-ALKEM-2018-11894

PATIENT
  Age: 42 Year
  Sex: Male

DRUGS (9)
  1. ETHAMBUTOL [Concomitant]
     Active Substance: ETHAMBUTOL HYDROCHLORIDE
     Dosage: 2400 MG, QD
     Route: 065
  2. AMIKACIN. [Concomitant]
     Active Substance: AMIKACIN
     Dosage: 1750 MG, TID
     Route: 065
  3. ETHAMBUTOL [Concomitant]
     Active Substance: ETHAMBUTOL HYDROCHLORIDE
     Indication: MYCOBACTERIAL INFECTION
     Dosage: 1600 MG, QD
     Route: 065
  4. LINEZOLID. [Suspect]
     Active Substance: LINEZOLID
     Indication: MYCOBACTERIAL INFECTION
     Dosage: 600 MG, BID
     Route: 065
  5. AZITHROMYCIN ANHYDROUS. [Concomitant]
     Active Substance: AZITHROMYCIN ANHYDROUS
     Indication: MYCOBACTERIAL INFECTION
     Dosage: 500 MG, QD
     Route: 065
  6. RIFABUTIN. [Concomitant]
     Active Substance: RIFABUTIN
     Indication: MYCOBACTERIAL INFECTION
     Dosage: 300 MG, QD
     Route: 048
  7. CLOFAZAMINE [Concomitant]
     Active Substance: CLOFAZIMINE
     Dosage: 200 MG, QD
     Route: 065
  8. RIFABUTIN. [Concomitant]
     Active Substance: RIFABUTIN
     Dosage: 450 MG, QD
     Route: 048
  9. AMIKACIN. [Concomitant]
     Active Substance: AMIKACIN
     Indication: MYCOBACTERIAL INFECTION
     Dosage: 1.5 G, (15 MG/KG)
     Route: 042

REACTIONS (1)
  - Neuropathy peripheral [Unknown]
